FAERS Safety Report 13732362 (Version 1)
Quarter: 2017Q3

REPORT INFORMATION
  Report Type: Spontaneous
  Country: US (occurrence: US)
  Receive Date: 20170707
  Receipt Date: 20170707
  Transmission Date: 20171127
  Serious: No
  Sender: FDA-Public Use
  Company Number: US-SA-2017SA096089

PATIENT
  Age: 37 Year
  Sex: Male

DRUGS (3)
  1. DUPIXENT [Suspect]
     Active Substance: DUPILUMAB
     Indication: ECZEMA
     Dosage: MAINTAINENCE DOSE
     Route: 065
     Dates: start: 201705
  2. DUPIXENT [Suspect]
     Active Substance: DUPILUMAB
     Indication: ECZEMA
     Dosage: LOADING DOSE
     Route: 065
     Dates: start: 20170513
  3. CYCLOSPORINE. [Concomitant]
     Active Substance: CYCLOSPORINE

REACTIONS (2)
  - Eczema [Not Recovered/Not Resolved]
  - Rash [Not Recovered/Not Resolved]

NARRATIVE: CASE EVENT DATE: 201705
